FAERS Safety Report 23112525 (Version 1)
Quarter: 2023Q4

REPORT INFORMATION
  Report Type: Spontaneous
  Country: DE (occurrence: DE)
  Receive Date: 20231027
  Receipt Date: 20231027
  Transmission Date: 20240109
  Serious: Yes (Other)
  Sender: FDA-Public Use
  Company Number: DE-002147023-NVSC2023DE037272

PATIENT
  Sex: Female
  Weight: 80 kg

DRUGS (6)
  1. FULVESTRANT [Suspect]
     Active Substance: FULVESTRANT
     Indication: Hormone receptor positive HER2 negative breast cancer
     Dosage: 500 MG (DAILY DOSE), Q4W
     Route: 030
     Dates: start: 20220112
  2. FULVESTRANT [Suspect]
     Active Substance: FULVESTRANT
     Dosage: 2.5 MG, QD, (TABLET)
     Route: 048
     Dates: start: 20191120, end: 20220111
  3. LETROZOLE [Suspect]
     Active Substance: LETROZOLE
     Indication: Hormone receptor positive HER2 negative breast cancer
     Dosage: 2.5 MG, QD
     Route: 048
     Dates: start: 20191120, end: 20220111
  4. LETROZOLE [Suspect]
     Active Substance: LETROZOLE
     Dosage: 400 MG, QD
     Route: 048
     Dates: start: 20200303
  5. KISQALI [Suspect]
     Active Substance: RIBOCICLIB
     Indication: Hormone receptor positive HER2 negative breast cancer
     Dosage: 400 MG
     Route: 048
     Dates: start: 20200303
  6. KISQALI [Suspect]
     Active Substance: RIBOCICLIB
     Dosage: 600 MG, QD
     Dates: start: 20191212, end: 20200212

REACTIONS (1)
  - Polyneuropathy [Not Recovered/Not Resolved]

NARRATIVE: CASE EVENT DATE: 20220701
